FAERS Safety Report 10079712 (Version 2)
Quarter: 2014Q2

REPORT INFORMATION
  Report Type: Report from Study
  Country: IT (occurrence: IT)
  Receive Date: 20140415
  Receipt Date: 20140415
  Transmission Date: 20141212
  Serious: Yes (Hospitalization)
  Sender: FDA-Public Use
  Company Number: IT-BAYER-2012-096365

PATIENT
  Age: 70 Year
  Sex: Male

DRUGS (1)
  1. SORAFENIB [Suspect]
     Indication: HEPATOCELLULAR CARCINOMA
     Dosage: UNK
     Dates: start: 20120820, end: 20120902

REACTIONS (2)
  - Hyperammonaemia [Recovered/Resolved]
  - Oedema [Recovering/Resolving]
